FAERS Safety Report 17691400 (Version 2)
Quarter: 2020Q2

REPORT INFORMATION
  Report Type: Spontaneous
  Country: CN (occurrence: CN)
  Receive Date: 20200422
  Receipt Date: 20200430
  Transmission Date: 20200714
  Serious: Yes (Other)
  Sender: FDA-Public Use
  Company Number: CN-ROCHE-2585609

PATIENT
  Age: 66 Year
  Sex: Male

DRUGS (3)
  1. XELODA [Suspect]
     Active Substance: CAPECITABINE
     Route: 048
     Dates: start: 2019
  2. XELOX [Concomitant]
     Active Substance: CAPECITABINE\OXALIPLATIN
     Indication: ADENOCARCINOMA
     Route: 065
     Dates: start: 20181014
  3. XELODA [Suspect]
     Active Substance: CAPECITABINE
     Indication: ADENOCARCINOMA
     Route: 048
     Dates: start: 20181014

REACTIONS (3)
  - Diarrhoea [Unknown]
  - Neurotoxicity [Unknown]
  - Intestinal obstruction [Unknown]
